FAERS Safety Report 7645311-1 (Version None)
Quarter: 2011Q3

REPORT INFORMATION
  Report Type: 
  Country: None (occurrence: None)
  Receive Date: 20110729
  Receipt Date: 20110715
  Transmission Date: 20111222
  Serious: Yes (Other)
  Sender: FDA-Public Use
  Company Number: JP-BAYER-2011-057051

PATIENT
  Age: 75 Year
  Sex: Female

DRUGS (1)
  1. ASPIRIN [Suspect]
     Indication: CARDIAC FAILURE
     Dosage: 100 MG, QD
     Route: 048
     Dates: start: 20090818, end: 20110510

REACTIONS (2)
  - URINARY RETENTION [None]
  - POLLAKIURIA [None]
